FAERS Safety Report 17508278 (Version 2)
Quarter: 2020Q1

REPORT INFORMATION
  Report Type: Report from Study
  Country: None (occurrence: US)
  Receive Date: 20200306
  Receipt Date: 20200319
  Transmission Date: 20200409
  Serious: Yes (Hospitalization, Other)
  Sender: FDA-Public Use
  Company Number: US-INSMED, INC.-US-INS-19-00918

PATIENT
  Age: 85 Year
  Sex: Female

DRUGS (4)
  1. ARIKAYCE [Suspect]
     Active Substance: AMIKACIN
     Route: 055
     Dates: start: 20190403, end: 2019
  2. ARIKAYCE [Suspect]
     Active Substance: AMIKACIN
     Route: 055
     Dates: start: 2019, end: 2020
  3. ARIKAYCE [Suspect]
     Active Substance: AMIKACIN
     Indication: MYCOBACTERIUM AVIUM COMPLEX INFECTION
     Route: 055
     Dates: start: 20190319, end: 20190331
  4. LAMIRA NEBULIZER SYSTEM [Suspect]
     Active Substance: DEVICE

REACTIONS (11)
  - Mycobacterium avium complex infection [Unknown]
  - Pyrexia [Unknown]
  - Muscle strain [Unknown]
  - Dysphonia [Unknown]
  - Underdose [Unknown]
  - Device leakage [Unknown]
  - Product packaging difficult to open [Unknown]
  - Pneumonia [Unknown]
  - Bronchoscopy [Unknown]
  - Product package associated injury [Unknown]
  - Cough [Unknown]

NARRATIVE: CASE EVENT DATE: 2020
